FAERS Safety Report 4433797-5 (Version None)
Quarter: 2004Q3

REPORT INFORMATION
  Report Type: 
  Country: None (occurrence: None)
  Receive Date: 20040825
  Receipt Date: 20040809
  Transmission Date: 20050211
  Serious: Yes (Other)
  Sender: FDA-Public Use
  Company Number: 202683

PATIENT
  Age: 38 Year
  Sex: Male
  Weight: 80.2867 kg

DRUGS (1)
  1. AVONEX [Suspect]
     Indication: MULTIPLE SCLEROSIS
     Dosage: 30 MCG QW IM
     Route: 042
     Dates: start: 20040101

REACTIONS (10)
  - AGEUSIA [None]
  - ANXIETY [None]
  - BALANCE DISORDER [None]
  - DEPRESSION [None]
  - FALL [None]
  - INFLUENZA LIKE ILLNESS [None]
  - MUSCLE SPASMS [None]
  - RHINORRHOEA [None]
  - URINARY TRACT INFECTION [None]
  - WEIGHT DECREASED [None]
